FAERS Safety Report 25748104 (Version 1)
Quarter: 2025Q3

REPORT INFORMATION
  Report Type: Spontaneous
  Country: JP (occurrence: JP)
  Receive Date: 20250901
  Receipt Date: 20250901
  Transmission Date: 20251021
  Serious: Yes (Other)
  Sender: ABBVIE
  Company Number: JP-IRONWOOD PHARMACEUTICALS, INC.-IRWD2025002128

PATIENT
  Age: 84 Year
  Sex: Male

DRUGS (1)
  1. LINZESS [Suspect]
     Active Substance: LINACLOTIDE
     Indication: Constipation
     Dosage: 0.5MG WAS ORALLY TAKEN 30 MINUTES BEFORE BREAKFAST
     Route: 048

REACTIONS (1)
  - Hypokalaemia [Unknown]
